FAERS Safety Report 8853302 (Version 5)
Quarter: 2013Q1

REPORT INFORMATION
  Report Type: Spontaneous
  Country: US (occurrence: US)
  Receive Date: 20121022
  Receipt Date: 20130208
  Transmission Date: 20140127
  Serious: Yes (Hospitalization, Other)
  Sender: FDA-Public Use
  Company Number: US-009507513-1112USA00603

PATIENT
  Sex: Female

DRUGS (2)
  1. FOSAMAX [Suspect]
     Indication: OSTEOPOROSIS PROPHYLAXIS
     Dosage: 10 MG, QD
     Route: 048
     Dates: start: 200210, end: 200604
  2. CALCIUM (UNSPECIFIED) (+) VITAMIN D (UNSPECIFIED) [Concomitant]
     Indication: OSTEOPOROSIS PROPHYLAXIS
     Dosage: 1500 MG, UNK
     Dates: start: 2000

REACTIONS (43)
  - Femur fracture [Unknown]
  - Femur fracture [Unknown]
  - Intramedullary rod insertion [Unknown]
  - Intramedullary rod insertion [Not Recovered/Not Resolved]
  - Facet joint syndrome [Unknown]
  - Spinal compression fracture [Unknown]
  - Peroneal nerve palsy [Unknown]
  - Intervertebral disc degeneration [Unknown]
  - Spinal fusion surgery [Unknown]
  - Dermatitis [Unknown]
  - Fall [Unknown]
  - Neurogenic bladder [Unknown]
  - Blood glucose increased [Unknown]
  - Spondylolisthesis [Unknown]
  - Urinary retention [Recovered/Resolved]
  - Iron deficiency anaemia [Unknown]
  - Pubis fracture [Unknown]
  - Spinal osteoarthritis [Unknown]
  - Spinal column stenosis [Unknown]
  - Peroneal nerve palsy [Unknown]
  - Neurogenic bowel [Unknown]
  - Lumbar radiculopathy [Unknown]
  - Hyperglycaemia [Recovered/Resolved]
  - Fall [Unknown]
  - Pseudomonas infection [Unknown]
  - Urinary tract infection [Unknown]
  - Spinal laminectomy [Unknown]
  - Jaw disorder [Unknown]
  - Medical device implantation [Unknown]
  - Periodontitis [Unknown]
  - Wrist fracture [Unknown]
  - Osteopenia [Unknown]
  - Tooth disorder [Unknown]
  - Tooth extraction [Unknown]
  - Tooth infection [Unknown]
  - Tooth disorder [Unknown]
  - Tooth disorder [Unknown]
  - Osteosclerosis [Unknown]
  - Neuropathy peripheral [Unknown]
  - Body height decreased [Unknown]
  - Fall [Unknown]
  - Drug hypersensitivity [Unknown]
  - Kyphosis [Unknown]
